FAERS Safety Report 18258738 (Version 3)
Quarter: 2022Q4

REPORT INFORMATION
  Report Type: Spontaneous
  Country: GB (occurrence: GB)
  Receive Date: 20200911
  Receipt Date: 20221128
  Transmission Date: 20230113
  Serious: Yes (Other)
  Sender: FDA-Public Use
  Company Number: GB-BAXTER-2020BAX017656

PATIENT
  Age: 36 Year
  Sex: Female
  Weight: 89 kg

DRUGS (14)
  1. METFORMIN [Suspect]
     Active Substance: METFORMIN HYDROCHLORIDE
     Indication: Diabetes mellitus
     Route: 065
     Dates: start: 20200824
  2. DEXAMETHASONE [Suspect]
     Active Substance: DEXAMETHASONE
     Indication: Supportive care
     Dosage: BD FOR 3 DAYS
     Route: 065
     Dates: start: 20200824, end: 20200826
  3. SODIUM CHLORIDE [Suspect]
     Active Substance: SODIUM CHLORIDE
     Indication: Medication dilution
     Dosage: IN ETOPOSIDE; 2 (UNSPECIFIED UNITS)
     Route: 042
     Dates: start: 20200824, end: 20200824
  4. SODIUM CHLORIDE [Suspect]
     Active Substance: SODIUM CHLORIDE
     Dosage: IN CISPLATIN AS REQUIRED
     Route: 065
     Dates: start: 20200824, end: 20200824
  5. ONDANSETRON [Suspect]
     Active Substance: ONDANSETRON
     Indication: Supportive care
     Dosage: 8 MG, BID, 2 MG/ML (16 MG, QD, BD FOR 3 DAYS)
     Route: 065
     Dates: start: 20200824, end: 20200826
  6. DOMPERIDONE [Suspect]
     Active Substance: DOMPERIDONE
     Indication: Supportive care
     Dosage: 10 MG, TID, PRN (AS REQUIRED)
     Route: 065
     Dates: start: 20200824
  7. CISPLATIN [Suspect]
     Active Substance: CISPLATIN
     Indication: Neoplasm recurrence
     Dosage: IN SODIUM CHLORIDE 0.9 PERCENT, PRN
     Route: 065
     Dates: start: 20200824, end: 20200824
  8. CISPLATIN [Suspect]
     Active Substance: CISPLATIN
     Indication: Germ cell neoplasm
  9. DALTEPARIN SODIUM [Suspect]
     Active Substance: DALTEPARIN SODIUM
     Indication: Product used for unknown indication
     Route: 065
     Dates: start: 20200824
  10. ETOPOSIDE [Suspect]
     Active Substance: ETOPOSIDE
     Indication: Neoplasm recurrence
     Route: 042
     Dates: start: 20200824, end: 20200824
  11. ETOPOSIDE [Suspect]
     Active Substance: ETOPOSIDE
     Indication: Germ cell neoplasm
  12. APREPITANT [Suspect]
     Active Substance: APREPITANT
     Indication: Supportive care
     Dosage: D1, PRN
     Route: 065
     Dates: start: 20200824
  13. APREPITANT [Suspect]
     Active Substance: APREPITANT
     Dosage: D2, PRN
     Route: 065
     Dates: start: 20200825
  14. APREPITANT [Suspect]
     Active Substance: APREPITANT
     Dosage: D3, PRN
     Route: 065
     Dates: start: 20200826, end: 20200826

REACTIONS (1)
  - Anaphylactic reaction [Recovered/Resolved]

NARRATIVE: CASE EVENT DATE: 20200824
